FAERS Safety Report 9999790 (Version 3)
Quarter: 2014Q1

REPORT INFORMATION
  Report Type: Report from Study
  Country: US (occurrence: US)
  Receive Date: 20140312
  Receipt Date: 20140318
  Transmission Date: 20141002
  Serious: Yes (Hospitalization, Other)
  Sender: FDA-Public Use
  Company Number: US-ACTELION-A-NJ2014-94015

PATIENT
  Age: 88 Year
  Sex: Female

DRUGS (14)
  1. VENTAVIS [Suspect]
     Indication: PULMONARY ARTERIAL HYPERTENSION
     Dosage: 5 MCG, 5X DAY
     Route: 055
     Dates: start: 20110621
  2. TRACLEER [Concomitant]
     Indication: PULMONARY ARTERIAL HYPERTENSION
     Route: 048
  3. COUMADIN [Concomitant]
  4. SILDENAFIL [Concomitant]
  5. LANOXIN [Concomitant]
  6. OXYBUTYNIN [Concomitant]
  7. GABAPENTIN [Concomitant]
  8. FUROSEMIDE [Concomitant]
  9. DEXILANT [Concomitant]
  10. ATORVASTATIN [Concomitant]
  11. DILTIAZEM [Concomitant]
  12. KLOR CON [Concomitant]
  13. PATANOL [Concomitant]
  14. PROAIR [Concomitant]

REACTIONS (2)
  - Fall [Unknown]
  - Concussion [Unknown]
